FAERS Safety Report 12863033 (Version 1)
Quarter: 2016Q4

REPORT INFORMATION
  Report Type: Spontaneous
  Country: KR (occurrence: KR)
  Receive Date: 20161019
  Receipt Date: 20161019
  Transmission Date: 20170207
  Serious: Yes (Other)
  Sender: FDA-Public Use
  Company Number: PHHY2016KR141775

PATIENT
  Age: 50 Year
  Sex: Female

DRUGS (1)
  1. ZYKADIA [Suspect]
     Active Substance: CERITINIB
     Indication: LUNG NEOPLASM MALIGNANT
     Dosage: 750 MG, UNK
     Route: 048
     Dates: start: 20160719

REACTIONS (10)
  - Leukocytosis [Unknown]
  - Hypomagnesaemia [Unknown]
  - Lung neoplasm malignant [Unknown]
  - Glucose tolerance test abnormal [Unknown]
  - Hyponatraemia [Unknown]
  - C-reactive protein increased [Unknown]
  - Lung carcinoma cell type unspecified recurrent [Unknown]
  - Blood alkaline phosphatase increased [Unknown]
  - Malignant neoplasm progression [Unknown]
  - Anaemia [Unknown]

NARRATIVE: CASE EVENT DATE: 20160927
